FAERS Safety Report 17280394 (Version 1)
Quarter: 2020Q1

REPORT INFORMATION
  Report Type: Spontaneous
  Country: US (occurrence: US)
  Receive Date: 20200117
  Receipt Date: 20200117
  Transmission Date: 20200409
  Serious: No
  Sender: FDA-Public Use
  Company Number: US-UCBSA-2018041609

PATIENT
  Age: 0 Day
  Sex: Female
  Weight: 3.63 kg

DRUGS (2)
  1. KEPPRA [Suspect]
     Active Substance: LEVETIRACETAM
     Indication: SEIZURE
     Dosage: 500 MG, 2X/DAY (BID)
     Route: 064
     Dates: end: 20151115
  2. KEPPRA [Suspect]
     Active Substance: LEVETIRACETAM
     Dosage: 500 MG, 2X/DAY (BID)
     Route: 063
     Dates: start: 20151115

REACTIONS (3)
  - Speech disorder [Unknown]
  - Maternal exposure during pregnancy [Unknown]
  - Exposure via breast milk [Unknown]

NARRATIVE: CASE EVENT DATE: 20151115
